FAERS Safety Report 5894890-3 (Version None)
Quarter: 2008Q3

REPORT INFORMATION
  Report Type: 
  Country: None (occurrence: None)
  Receive Date: 20080924
  Receipt Date: 20080912
  Transmission Date: 20090109
  Serious: Yes (Other)
  Sender: FDA-Public Use
  Company Number: PHHY2008BR21339

PATIENT
  Weight: 22.34 kg

DRUGS (1)
  1. TOFRANIL [Suspect]
     Indication: PSYCHOMOTOR HYPERACTIVITY
     Dosage: 25 MG/DAY
     Route: 048
     Dates: end: 20080910

REACTIONS (7)
  - AGGRESSION [None]
  - FEAR [None]
  - INSOMNIA [None]
  - PIGMENTATION DISORDER [None]
  - PRURITUS GENERALISED [None]
  - SKIN DISCOLOURATION [None]
  - VISION BLURRED [None]
